FAERS Safety Report 13530783 (Version 1)
Quarter: 2017Q2

REPORT INFORMATION
  Report Type: Spontaneous
  Country: US (occurrence: US)
  Receive Date: 20170509
  Receipt Date: 20170509
  Transmission Date: 20170830
  Serious: No
  Sender: FDA-Public Use
  Company Number: None

PATIENT
  Age: 45 Year
  Sex: Female
  Weight: 73.8 kg

DRUGS (4)
  1. TURMERIC [Concomitant]
     Active Substance: HERBALS\TURMERIC
  2. MULTIVITAMIN [Concomitant]
     Active Substance: VITAMINS
  3. DEXAMETHASON [Suspect]
     Active Substance: DEXAMETHASONE
     Indication: EXPOSURE TO TOXIC AGENT
     Dosage: ORAL, 51 TABLET(S); STAGGERED?
     Route: 048
     Dates: start: 20170502, end: 20170509
  4. CALCIUM [Concomitant]
     Active Substance: CALCIUM

REACTIONS (13)
  - Hypoaesthesia [None]
  - Crying [None]
  - Feeling abnormal [None]
  - Listless [None]
  - Aggression [None]
  - Depression [None]
  - Limb discomfort [None]
  - Somnolence [None]
  - Muscle spasms [None]
  - Euphoric mood [None]
  - Muscular weakness [None]
  - Hypoaesthesia oral [None]
  - Dyspnoea [None]

NARRATIVE: CASE EVENT DATE: 20170507
